FAERS Safety Report 23989538 (Version 1)
Quarter: 2024Q2

REPORT INFORMATION
  Report Type: Spontaneous
  Country: US (occurrence: US)
  Receive Date: 20240619
  Receipt Date: 20240619
  Transmission Date: 20240716
  Serious: Yes (Disabling)
  Sender: FDA-Public Use
  Company Number: US-002147023-NVSC2024US125918

PATIENT
  Age: 40 Year
  Sex: Female
  Weight: 76.204 kg

DRUGS (2)
  1. COSENTYX [Suspect]
     Active Substance: SECUKINUMAB
     Indication: Hidradenitis
     Dosage: 300 MG, QMO (300/2 MG, 150X2 MG)
     Route: 065
     Dates: start: 20231023
  2. COSENTYX [Suspect]
     Active Substance: SECUKINUMAB
     Indication: Psoriatic arthropathy

REACTIONS (4)
  - Pharyngeal ulceration [Unknown]
  - Gingival swelling [Unknown]
  - Stomatitis [Unknown]
  - Glossodynia [Unknown]

NARRATIVE: CASE EVENT DATE: 20231129
